FAERS Safety Report 8386613-3 (Version None)
Quarter: 2012Q2

REPORT INFORMATION
  Report Type: 
  Country: None (occurrence: None)
  Receive Date: 20120525
  Receipt Date: 20120309
  Transmission Date: 20120825
  Serious: No
  Sender: FDA-Public Use
  Company Number: US-GLAXOSMITHKLINE-A0969232A

PATIENT
  Age: 22 Year
  Sex: Male

DRUGS (1)
  1. VERAMYST [Suspect]
     Indication: SEASONAL ALLERGY
     Dosage: 2SPR PER DAY
     Route: 045
     Dates: start: 20110401

REACTIONS (3)
  - RHINALGIA [None]
  - PRODUCT QUALITY ISSUE [None]
  - NASAL DISCOMFORT [None]
